APPROVED DRUG PRODUCT: DEXAMETHASONE
Active Ingredient: DEXAMETHASONE
Strength: 0.75MG
Dosage Form/Route: TABLET;ORAL
Application: A088481 | Product #003 | TE Code: BP
Applicant: ALVOGEN INC
Approved: Apr 28, 1983 | RLD: No | RS: No | Type: RX